FAERS Safety Report 9637751 (Version 1)
Quarter: 2013Q4

REPORT INFORMATION
  Report Type: Spontaneous
  Country: US (occurrence: US)
  Receive Date: 20131022
  Receipt Date: 20131022
  Transmission Date: 20140711
  Serious: Yes (Other)
  Sender: FDA-Public Use
  Company Number: US-PFIZER INC-2013300354

PATIENT
  Age: 62 Year
  Sex: Male
  Weight: 69.84 kg

DRUGS (1)
  1. BENEFIX [Suspect]
     Dosage: UNK, AS NEEDED

REACTIONS (1)
  - Rash papular [Recovered/Resolved]
